FAERS Safety Report 6419985-7 (Version None)
Quarter: 2009Q4

REPORT INFORMATION
  Report Type: 
  Country: None (occurrence: None)
  Receive Date: 20091029
  Receipt Date: 20091018
  Transmission Date: 20100525
  Serious: Yes (Hospitalization)
  Sender: FDA-Public Use
  Company Number: IL-PFIZER INC-2009272614

PATIENT
  Age: 64 Year

DRUGS (15)
  1. BLINDED *NO SUBJECT DRUG [Suspect]
     Indication: PROSTATE CANCER
     Dosage: 25 MG, 1X/DAY
     Route: 048
     Dates: start: 20090629
  2. BLINDED *PLACEBO [Suspect]
     Indication: PROSTATE CANCER
     Dosage: 25 MG, 1X/DAY
     Route: 048
     Dates: start: 20090629
  3. BLINDED SUNITINIB MALATE [Suspect]
     Indication: PROSTATE CANCER
     Dosage: 25 MG, 1X/DAY
     Route: 048
     Dates: start: 20090629
  4. PREDNISONE [Suspect]
     Indication: PROSTATE CANCER
     Dosage: UNK
     Route: 048
     Dates: start: 20090629, end: 20090814
  5. DEXAMETHASONE [Suspect]
     Dosage: UNK
     Dates: start: 20090801
  6. LIPITOR [Concomitant]
     Indication: HYPERCHOLESTEROLAEMIA
     Dosage: UNK
     Dates: start: 20050101
  7. GLUBEN [Concomitant]
     Indication: DIABETES MELLITUS
     Dosage: UNK
     Dates: start: 20080501
  8. ELTROXIN ^GLAXO^ [Concomitant]
     Indication: HYPERTHYROIDISM
     Dosage: UNK
     Dates: start: 20090403
  9. RAMIPRIL [Concomitant]
     Indication: HYPERTENSION
     Dosage: UNK
     Dates: start: 20070101
  10. BISOPROLOL FUMARATE [Concomitant]
     Indication: HYPERTENSION
     Dosage: UNK
     Dates: start: 20070101
  11. ACETYLSALICYLIC ACID [Concomitant]
     Indication: DEEP VEIN THROMBOSIS
     Dosage: UNK
     Dates: start: 20050121
  12. CLEXANE [Concomitant]
     Indication: DEEP VEIN THROMBOSIS
     Dosage: UNK
     Dates: start: 20080101
  13. CIPRALEX [Concomitant]
     Indication: ANXIETY
     Dosage: UNK
     Dates: start: 20090801
  14. VABEN [Concomitant]
     Indication: INSOMNIA
     Dosage: UNK
     Dates: start: 20090801
  15. STILNOX [Concomitant]
     Indication: INSOMNIA
     Dosage: UNK
     Dates: start: 20090801

REACTIONS (2)
  - MUSCULAR WEAKNESS [None]
  - POLYNEUROPATHY IN MALIGNANT DISEASE [None]
